FAERS Safety Report 7483585-0 (Version None)
Quarter: 2011Q2

REPORT INFORMATION
  Report Type: 
  Country: None (occurrence: None)
  Receive Date: 20110517
  Receipt Date: 20110511
  Transmission Date: 20111010
  Serious: No
  Sender: FDA-Public Use
  Company Number: US-PFIZER INC-2011049815

PATIENT
  Sex: Male

DRUGS (2)
  1. CIPROFLOXACIN [Concomitant]
     Dosage: UNK
  2. VIAGRA [Suspect]

REACTIONS (1)
  - NO ADVERSE EVENT [None]
